FAERS Safety Report 24609001 (Version 1)
Quarter: 2024Q4

REPORT INFORMATION
  Report Type: Spontaneous
  Country: US (occurrence: US)
  Receive Date: 20241112
  Receipt Date: 20241112
  Transmission Date: 20250114
  Serious: Yes (Hospitalization)
  Sender: PFIZER
  Company Number: US-PFIZER INC-202400298192

PATIENT
  Age: 60 Year
  Sex: Female

DRUGS (3)
  1. XELJANZ [Suspect]
     Active Substance: TOFACITINIB CITRATE
     Dosage: TAKE 5 MG TABLET ORAL TWICE A DAY
     Route: 048
     Dates: end: 20240720
  2. XELJANZ [Suspect]
     Active Substance: TOFACITINIB CITRATE
     Dosage: ONCE A DAY
     Route: 048
     Dates: start: 2024, end: 2024
  3. XELJANZ [Suspect]
     Active Substance: TOFACITINIB CITRATE
     Dosage: TAKE 5 MG TABLET ORAL TWICE A DAY
     Route: 048
     Dates: start: 202411

REACTIONS (4)
  - Pneumonia [Recovered/Resolved]
  - Sepsis [Recovered/Resolved]
  - Condition aggravated [Recovered/Resolved]
  - Neuralgia [Not Recovered/Not Resolved]

NARRATIVE: CASE EVENT DATE: 20240101
